FAERS Safety Report 17847001 (Version 1)
Quarter: 2020Q2

REPORT INFORMATION
  Report Type: Spontaneous
  Country: CN (occurrence: CN)
  Receive Date: 20200601
  Receipt Date: 20200601
  Transmission Date: 20200714
  Serious: Yes (Other)
  Sender: FDA-Public Use
  Company Number: CN-ABBVIE-20K-035-3423920-00

PATIENT
  Age: 27 Year
  Weight: 55 kg

DRUGS (1)
  1. ALUVIA [Suspect]
     Active Substance: LOPINAVIR\RITONAVIR
     Indication: EXPOSURE TO COMMUNICABLE DISEASE
     Route: 048
     Dates: start: 20200518, end: 20200527

REACTIONS (4)
  - Off label use [Unknown]
  - Pruritus [Recovering/Resolving]
  - Upper airway obstruction [Recovered/Resolved]
  - Milia [Recovering/Resolving]

NARRATIVE: CASE EVENT DATE: 20200518
